FAERS Safety Report 14904710 (Version 2)
Quarter: 2021Q2

REPORT INFORMATION
  Report Type: Spontaneous
  Country: US (occurrence: US)
  Receive Date: 20180517
  Receipt Date: 20210422
  Transmission Date: 20210716
  Serious: No
  Sender: FDA-Public Use
  Company Number: US-SA-2017SA147332

PATIENT
  Age: 68 Year
  Sex: Female

DRUGS (1)
  1. LANTUS [Suspect]
     Active Substance: INSULIN GLARGINE
     Dosage: 20 IU, EVERY EVENING
     Route: 051
     Dates: start: 201603

REACTIONS (3)
  - Product quality issue [Unknown]
  - Injection site pain [Unknown]
  - Blood glucose increased [Unknown]
